FAERS Safety Report 4682670-6 (Version None)
Quarter: 2005Q2

REPORT INFORMATION
  Report Type: 
  Country: None (occurrence: None)
  Receive Date: 20050606
  Receipt Date: 20050528
  Transmission Date: 20051028
  Serious: Yes (Life-Threatening, Hospitalization, Disabling)
  Sender: FDA-Public Use
  Company Number: GB-GLAXOSMITHKLINE-B0382741A

PATIENT
  Age: 6 Year
  Sex: Male
  Weight: 19.05 kg

DRUGS (1)
  1. CO-AMOXICLAV [Suspect]
     Indication: IMPETIGO
     Dosage: 5ML PER DAY
     Route: 048
     Dates: start: 20050411, end: 20050415

REACTIONS (3)
  - SKIN HYPERPIGMENTATION [None]
  - SOFT TISSUE INJURY [None]
  - STEVENS-JOHNSON SYNDROME [None]
